FAERS Safety Report 9914133 (Version 3)
Quarter: 2014Q3

REPORT INFORMATION
  Report Type: Spontaneous
  Country: JP (occurrence: JP)
  Receive Date: 20140220
  Receipt Date: 20140908
  Transmission Date: 20150326
  Serious: Yes (Death, Hospitalization)
  Sender: FDA-Public Use
  Company Number: JP-PFIZER INC-2014046665

PATIENT
  Age: 51 Year
  Sex: Male
  Weight: 65 kg

DRUGS (8)
  1. OXYCONTIN [Suspect]
     Active Substance: OXYCODONE HYDROCHLORIDE
     Indication: METASTATIC RENAL CELL CARCINOMA
     Dosage: 5 MG, 2X/DAY
     Route: 048
     Dates: start: 20140131, end: 20140320
  2. AMLODIN [Concomitant]
     Active Substance: AMLODIPINE BESYLATE
     Indication: PROPHYLAXIS
     Dosage: 5 MG, 1X/DAY
     Route: 048
     Dates: start: 20140207
  3. MAG-LAX [Concomitant]
     Active Substance: MAGNESIUM HYDROXIDE\PARAFFIN
     Indication: CONSTIPATION
     Dosage: 330 MG, 2X/DAY
     Route: 048
     Dates: start: 20140207
  4. CELECOX [Concomitant]
     Active Substance: CELECOXIB
     Indication: METASTATIC RENAL CELL CARCINOMA
     Dosage: 200 MG, 2X/DAY
     Route: 048
     Dates: start: 20140203
  5. CALONAL [Concomitant]
     Active Substance: ACETAMINOPHEN
     Indication: METASTATIC RENAL CELL CARCINOMA
     Dosage: 600 MG, 3X/DAY
     Route: 048
     Dates: start: 20140203
  6. INLYTA [Suspect]
     Active Substance: AXITINIB
     Indication: METASTATIC RENAL CELL CARCINOMA
     Dosage: 5 MG, 2X/DAY
     Route: 048
     Dates: start: 20140207, end: 20140211
  7. OXINORM (OXYCODONE HYDROCHLORIDE) [Suspect]
     Active Substance: OXYCODONE HYDROCHLORIDE
     Indication: METASTATIC RENAL CELL CARCINOMA
     Dosage: 2.5 MG, 2X/DAY
     Route: 048
     Dates: start: 20140131, end: 20140320
  8. MEDICON [Concomitant]
     Active Substance: DEXTROMETHORPHAN HYDROBROMIDE
     Indication: METASTATIC RENAL CELL CARCINOMA
     Dosage: 15 MG, 3X/DAY
     Route: 048
     Dates: start: 20140130

REACTIONS (3)
  - Metastatic renal cell carcinoma [Fatal]
  - Cholestasis [Recovering/Resolving]
  - Disease progression [Fatal]

NARRATIVE: CASE EVENT DATE: 20140211
